FAERS Safety Report 7093251-1 (Version None)
Quarter: 2010Q4

REPORT INFORMATION
  Report Type: 
  Country: None (occurrence: None)
  Receive Date: 20101110
  Receipt Date: 20101025
  Transmission Date: 20110411
  Serious: Yes (Other)
  Sender: FDA-Public Use
  Company Number: JP-PFIZER INC-2010129095

PATIENT
  Age: 77 Year
  Sex: Male
  Weight: 70 kg

DRUGS (6)
  1. FARMORUBICIN [Suspect]
     Indication: HODGKIN'S DISEASE
     Dosage: 42 MG, UNK
     Dates: start: 20101007, end: 20101007
  2. BLEO [Suspect]
     Indication: HODGKIN'S DISEASE
     Dosage: 8.5 MG, 1X/DAY
     Dates: start: 20101007, end: 20101007
  3. EXAL 1 [Concomitant]
     Indication: HODGKIN'S DISEASE
     Dosage: 10 MG, 1X/DAY
     Route: 041
     Dates: start: 20101007, end: 20101007
  4. DACARBAZINE [Concomitant]
     Indication: HODGKIN'S DISEASE
     Dosage: 500 MG, 1X/DAY
     Dates: start: 20101007, end: 20101007
  5. KYTRIL [Concomitant]
     Dosage: 3 MG, 1X/DAY
     Route: 041
     Dates: start: 20101007, end: 20101011
  6. PREDNISOLONE [Concomitant]
     Dosage: 5 MG, 1X/DAY
     Route: 048

REACTIONS (3)
  - BLOOD CREATINE PHOSPHOKINASE INCREASED [None]
  - PLATELET COUNT DECREASED [None]
  - PYREXIA [None]
